FAERS Safety Report 25963133 (Version 2)
Quarter: 2025Q4

REPORT INFORMATION
  Report Type: Report from Study
  Country: US (occurrence: US)
  Receive Date: 20251027
  Receipt Date: 20251110
  Transmission Date: 20260117
  Serious: Yes (Hospitalization)
  Sender: EISAI
  Company Number: US-Eisai-EC-2025-197295

PATIENT
  Age: 54 Year
  Sex: Female
  Weight: 154.49 kg

DRUGS (51)
  1. LENVIMA [Suspect]
     Active Substance: LENVATINIB
     Indication: Renal cancer
     Route: 048
     Dates: start: 20250909, end: 202510
  2. LENVIMA [Suspect]
     Active Substance: LENVATINIB
     Dosage: MISSED ONE DOSE
     Route: 048
     Dates: start: 2025, end: 2025
  3. LENVIMA [Suspect]
     Active Substance: LENVATINIB
     Route: 048
     Dates: start: 2025
  4. FUROSEMIDE [Concomitant]
     Active Substance: FUROSEMIDE
  5. METOPROLOL TARTRATE [Concomitant]
     Active Substance: METOPROLOL TARTRATE
  6. SPIRONOLACTONE [Concomitant]
     Active Substance: SPIRONOLACTONE
  7. TRIAMCINOLONE ACETONIDE [Concomitant]
     Active Substance: TRIAMCINOLONE ACETONIDE
  8. CYCLOBENZAPRINE HYDROCHLORIDE [Concomitant]
     Active Substance: CYCLOBENZAPRINE HYDROCHLORIDE
  9. DEXAMETHASONE [Concomitant]
     Active Substance: DEXAMETHASONE
  10. ATROPINE\DIPHENOXYLATE [Concomitant]
     Active Substance: ATROPINE\DIPHENOXYLATE
  11. Dulera Inhalation Aerosol [Concomitant]
  12. FERROUS GLUCONATE [Concomitant]
     Active Substance: FERROUS GLUCONATE
  13. FLONASE ALLERGY RELIEF [Concomitant]
     Active Substance: FLUTICASONE PROPIONATE
  14. FOLIC ACID [Concomitant]
     Active Substance: FOLIC ACID
  15. GABAPENTIN [Concomitant]
     Active Substance: GABAPENTIN
  16. HYDROXYZINE [Concomitant]
     Active Substance: HYDROXYZINE HYDROCHLORIDE
  17. JARDIANCE [Concomitant]
     Active Substance: EMPAGLIFLOZIN
  18. Ketoconazole External Shampoo [Concomitant]
  19. KLOR-CON M20 [Concomitant]
     Active Substance: POTASSIUM CHLORIDE
  20. LAMOTRIGINE [Concomitant]
     Active Substance: LAMOTRIGINE
  21. Lantus Subcutaneous [Concomitant]
  22. LEVOTHYROXINE SODIUM [Concomitant]
     Active Substance: LEVOTHYROXINE SODIUM
  23. LORATADINE [Concomitant]
     Active Substance: LORATADINE
  24. METFORMIN HYDROCHLORIDE [Concomitant]
     Active Substance: METFORMIN HYDROCHLORIDE
  25. MIRALAX [Concomitant]
     Active Substance: POLYETHYLENE GLYCOL 3350
  26. VITAMINS [Concomitant]
     Active Substance: VITAMINS
  27. Mupirocin External Ointment [Concomitant]
  28. NORVASC [Concomitant]
     Active Substance: AMLODIPINE BESYLATE
  29. NYSTATIN [Concomitant]
     Active Substance: NYSTATIN
  30. PANTOPRAZOLE SODIUM [Concomitant]
     Active Substance: PANTOPRAZOLE SODIUM
  31. POTASSIUM CHLORIDE [Concomitant]
     Active Substance: POTASSIUM CHLORIDE
  32. PROCHLORPERAZINE MALEATE [Concomitant]
     Active Substance: PROCHLORPERAZINE MALEATE
  33. SENNA-S [Concomitant]
     Active Substance: DOCUSATE SODIUM\SENNOSIDES
  34. SEROQUEL [Concomitant]
     Active Substance: QUETIAPINE FUMARATE
  35. Spiriva Respimat Inhalation [Concomitant]
  36. TRAMADOL [Concomitant]
     Active Substance: TRAMADOL
  37. TRULICITY [Concomitant]
     Active Substance: DULAGLUTIDE
  38. TYLENOL EXTRA STRENGTH [Concomitant]
     Active Substance: ACETAMINOPHEN
  39. Ventolin HFA Inhalation [Concomitant]
  40. VITAMIN D3 [Concomitant]
     Active Substance: CHOLECALCIFEROL
  41. ZEPBOUND [Concomitant]
     Active Substance: TIRZEPATIDE
  42. ZOFRAN [Concomitant]
     Active Substance: ONDANSETRON HYDROCHLORIDE
  43. ALLOPURINOL [Concomitant]
     Active Substance: ALLOPURINOL
  44. ASPIRIN [Concomitant]
     Active Substance: ASPIRIN
  45. AZITHROMYCIN [Concomitant]
     Active Substance: AZITHROMYCIN
  46. BUPROPION HYDROCHLORIDE [Concomitant]
     Active Substance: BUPROPION HYDROCHLORIDE
  47. CEPHALEXIN [Concomitant]
     Active Substance: CEPHALEXIN
  48. CETIRIZINE [Concomitant]
     Active Substance: CETIRIZINE HYDROCHLORIDE
  49. CLOBETASOL PROPIONATE [Concomitant]
     Active Substance: CLOBETASOL PROPIONATE
  50. ATORVASTATIN [Concomitant]
     Active Substance: ATORVASTATIN
  51. CALCIUM [Concomitant]
     Active Substance: CALCIUM

REACTIONS (4)
  - Blood pressure increased [Recovered/Resolved]
  - Pneumonia [Recovered/Resolved]
  - Arthralgia [Recovering/Resolving]
  - Stomatitis [Not Recovered/Not Resolved]

NARRATIVE: CASE EVENT DATE: 20250101
